FAERS Safety Report 14007024 (Version 1)
Quarter: 2017Q3

REPORT INFORMATION
  Report Type: Spontaneous
  Country: FR (occurrence: FR)
  Receive Date: 20170925
  Receipt Date: 20170925
  Transmission Date: 20171128
  Serious: Yes (Death, Hospitalization)
  Sender: FDA-Public Use
  Company Number: FR-ROCHE-1996239

PATIENT
  Age: 87 Year
  Sex: Male

DRUGS (13)
  1. TRIATEC (FRANCE) [Concomitant]
     Active Substance: RAMIPRIL
     Route: 048
  2. DUROGESIC [Concomitant]
     Active Substance: FENTANYL
     Dosage: 12 MICROGRAMS/ HOURS (2.1 MG/5.25 CM2)
     Route: 062
  3. OFLOCET [Interacting]
     Active Substance: OFLOXACIN
     Indication: LUNG INFECTION
     Route: 048
     Dates: start: 20160415, end: 20160422
  4. CARDENSIEL [Concomitant]
     Active Substance: BISOPROLOL FUMARATE
     Route: 048
  5. VITAMIN K [Concomitant]
     Active Substance: PHYTONADIONE
     Route: 065
  6. ROCEPHINE [Suspect]
     Active Substance: CEFTRIAXONE SODIUM
     Indication: LUNG INFECTION
     Dosage: 1 G/3.5 ML
     Route: 065
     Dates: start: 20160411, end: 20160422
  7. DOLIPRANE [Concomitant]
     Active Substance: ACETAMINOPHEN
  8. PREVISCAN (FRANCE) [Interacting]
     Active Substance: FLUINDIONE
     Indication: ATRIAL FIBRILLATION
     Route: 048
     Dates: start: 20160413, end: 20160415
  9. PREVISCAN (FRANCE) [Interacting]
     Active Substance: FLUINDIONE
     Route: 048
     Dates: start: 20160419, end: 20160422
  10. KEPPRA [Concomitant]
     Active Substance: LEVETIRACETAM
     Route: 048
  11. CALCIPARINE [Concomitant]
     Active Substance: HEPARIN CALCIUM
  12. CARDENSIEL [Concomitant]
     Active Substance: BISOPROLOL FUMARATE
     Route: 048
  13. XATRAL [Concomitant]
     Active Substance: ALFUZOSIN
     Route: 048

REACTIONS (4)
  - Haematuria [Fatal]
  - Rectal haemorrhage [Fatal]
  - Drug interaction [Fatal]
  - International normalised ratio increased [Not Recovered/Not Resolved]

NARRATIVE: CASE EVENT DATE: 20160415
